FAERS Safety Report 11087746 (Version 4)
Quarter: 2015Q3

REPORT INFORMATION
  Report Type: Spontaneous
  Country: IT (occurrence: IT)
  Receive Date: 20150504
  Receipt Date: 20150924
  Transmission Date: 20151125
  Serious: Yes (Death, Other)
  Sender: FDA-Public Use
  Company Number: IT-GILEAD-2015-0151448

PATIENT
  Age: 73 Year
  Sex: Male
  Weight: 72 kg

DRUGS (11)
  1. SOVALDI [Suspect]
     Active Substance: SOFOSBUVIR
     Indication: CHRONIC HEPATITIS C
     Dosage: 400 MG, QD
     Route: 048
     Dates: start: 20150319, end: 20150412
  2. OLYSIO [Suspect]
     Active Substance: SIMEPREVIR
     Indication: CHRONIC HEPATITIS C
     Dosage: 150 MG, QD
     Route: 048
     Dates: start: 20150319, end: 20150420
  3. KANRENOL [Concomitant]
     Active Substance: CANRENOATE POTASSIUM
     Dosage: 100 MG, UNK
     Route: 048
  4. REBETOL [Suspect]
     Active Substance: RIBAVIRIN
     Indication: CHRONIC HEPATITIS C
     Dosage: 400 MG, BID
     Route: 048
     Dates: start: 20150319, end: 20150412
  5. HUMALOG [Concomitant]
     Active Substance: INSULIN LISPRO
     Route: 065
  6. SPIRIVA [Concomitant]
     Active Substance: TIOTROPIUM BROMIDE MONOHYDRATE
     Dosage: 1 DF, BID
     Route: 065
  7. SOVALDI [Suspect]
     Active Substance: SOFOSBUVIR
     Dosage: 400 MG, UNK
     Route: 048
     Dates: start: 20150412, end: 20150420
  8. LANGAST [Concomitant]
     Dosage: 30 MG, QD
     Route: 048
  9. CARDIOASPIRIN [Concomitant]
     Active Substance: ASPIRIN
     Dosage: 100 MG, UNK
     Route: 048
  10. LASIX [Concomitant]
     Active Substance: FUROSEMIDE
     Dosage: 25 MG, BID
     Route: 048
  11. SIMETHICONE (DIMETHICONE) [Concomitant]
     Active Substance: DIMETHICONE
     Dosage: 10 MG, QD
     Route: 048

REACTIONS (2)
  - Acute kidney injury [Fatal]
  - Oliguria [Fatal]

NARRATIVE: CASE EVENT DATE: 20150410
